FAERS Safety Report 12627888 (Version 2)
Quarter: 2016Q3

REPORT INFORMATION
  Report Type: Report from Study
  Country: NL (occurrence: NL)
  Receive Date: 20160806
  Receipt Date: 20160825
  Transmission Date: 20161109
  Serious: Yes (Hospitalization, Other)
  Sender: FDA-Public Use
  Company Number: NL-ABBVIE-16K-114-1692727-00

PATIENT
  Age: 71 Year
  Sex: Male

DRUGS (1)
  1. DUODOPA [Suspect]
     Active Substance: CARBIDOPA\LEVODOPA
     Indication: PARKINSON^S DISEASE
     Dosage: MORNING DOSE: 5.0; CONTINUOUS DOSE: 4.2; EXTRA DOSE: 2.0, NIGHT DOSE: 2.5
     Route: 050
     Dates: start: 20131010

REACTIONS (5)
  - Urinary tract infection [Not Recovered/Not Resolved]
  - Cerebrovascular accident [Unknown]
  - Dysphagia [Unknown]
  - Somnolence [Not Recovered/Not Resolved]
  - Feeling abnormal [Not Recovered/Not Resolved]

NARRATIVE: CASE EVENT DATE: 201605
